FAERS Safety Report 19718429 (Version 6)
Quarter: 2021Q4

REPORT INFORMATION
  Report Type: Report from Study
  Country: US (occurrence: US)
  Receive Date: 20210818
  Receipt Date: 20211221
  Transmission Date: 20220303
  Serious: No
  Sender: FDA-Public Use
  Company Number: NVSC2021US184761

PATIENT
  Age: 48 Year
  Sex: Female
  Weight: 70.3 kg

DRUGS (2)
  1. ENTRESTO [Suspect]
     Active Substance: SACUBITRIL\VALSARTAN
     Indication: Cardiac failure chronic
     Dosage: UNK
     Route: 065
  2. LASIX [Concomitant]
     Active Substance: FUROSEMIDE
     Indication: Diuretic therapy
     Dosage: UNK
     Route: 065

REACTIONS (12)
  - Depressed mood [Unknown]
  - Heart rate irregular [Unknown]
  - Poor quality sleep [Unknown]
  - Decreased activity [Unknown]
  - Dyspnoea [Unknown]
  - Weight increased [Unknown]
  - Localised oedema [Unknown]
  - Malaise [Unknown]
  - Nervousness [Unknown]
  - Weight decreased [Unknown]
  - Fear [Unknown]
  - Fatigue [Unknown]
